FAERS Safety Report 8602138-1 (Version None)
Quarter: 2012Q3

REPORT INFORMATION
  Report Type: 
  Country: None (occurrence: None)
  Receive Date: 20120817
  Receipt Date: 20120814
  Transmission Date: 20120928
  Serious: Yes (Other)
  Sender: FDA-Public Use
  Company Number: US-AMGEN-USASP2012051748

PATIENT
  Age: 40 Year
  Sex: Male

DRUGS (3)
  1. ENBREL [Suspect]
     Indication: PUSTULAR PSORIASIS
     Dosage: 50 MG, 2 TIMES/WK
     Dates: start: 20120701
  2. CYCLOSPORINE [Concomitant]
     Dosage: UNK
  3. CRESTOR [Concomitant]
     Dosage: UNK MG, UNK

REACTIONS (5)
  - ALTERED STATE OF CONSCIOUSNESS [None]
  - INSOMNIA [None]
  - PAIN [None]
  - MYALGIA [None]
  - FATIGUE [None]
